FAERS Safety Report 19777884 (Version 2)
Quarter: 2022Q2

REPORT INFORMATION
  Report Type: Report from Study
  Country: DE (occurrence: DE)
  Receive Date: 20210902
  Receipt Date: 20220516
  Transmission Date: 20220721
  Serious: Yes (Other)
  Sender: FDA-Public Use
  Company Number: DE-ROCHE-2385886

PATIENT

DRUGS (18)
  1. HEPATITIS B VIRUS VACCINE [Suspect]
     Active Substance: HEPATITIS B VIRUS VACCINE
     Indication: Prophylaxis
     Route: 065
  2. PFIZER-BIONTECH COVID-19 VACCINE [Suspect]
     Active Substance: TOZINAMERAN
     Indication: Prophylaxis
     Dosage: SECOND VACCINATION
     Route: 065
     Dates: start: 20210525
  3. ACYCLOVIR [Suspect]
     Active Substance: ACYCLOVIR
     Indication: Product used for unknown indication
     Dosage: UNK
     Route: 065
  4. OCREVUS [Suspect]
     Active Substance: OCRELIZUMAB
     Indication: Primary progressive multiple sclerosis
     Dosage: 300 MG
     Route: 042
     Dates: start: 20190806
  5. OCREVUS [Suspect]
     Active Substance: OCRELIZUMAB
     Indication: Relapsing-remitting multiple sclerosis
     Dosage: DATE OF TREATMENT: 07/SEP/2020
     Route: 042
     Dates: start: 20200305
  6. OCREVUS [Suspect]
     Active Substance: OCRELIZUMAB
     Dosage: 600 MG
     Route: 042
     Dates: start: 20200907
  7. PROMETHAZINE HYDROCHLORIDE [Concomitant]
     Active Substance: PROMETHAZINE HYDROCHLORIDE
     Indication: Product used for unknown indication
     Dosage: 75 MG
     Route: 065
  8. DULOXETINE [Concomitant]
     Active Substance: DULOXETINE
     Indication: Product used for unknown indication
     Dosage: UNK
     Route: 065
  9. THYROX [Concomitant]
     Indication: Product used for unknown indication
     Dosage: UNK
     Route: 065
  10. TROSPIUM CHLORIDE [Concomitant]
     Active Substance: TROSPIUM CHLORIDE
     Indication: Product used for unknown indication
     Dosage: UNK
     Route: 065
  11. ESCITALOPRAM [Concomitant]
     Active Substance: ESCITALOPRAM OXALATE
     Indication: Product used for unknown indication
     Dosage: 20 MG
     Route: 065
  12. PYOLYSIN [Concomitant]
     Indication: Wound
     Dosage: UNK
     Route: 065
  13. MIRABEGRON [Concomitant]
     Active Substance: MIRABEGRON
     Indication: Product used for unknown indication
     Dosage: UNK
     Route: 065
  14. CORTISONE [Concomitant]
     Active Substance: CORTISONE
     Indication: Premedication
     Dosage: UNK
     Route: 065
     Dates: start: 20200305, end: 20200305
  15. LEVOTHYROXINE SODIUM [Concomitant]
     Active Substance: LEVOTHYROXINE SODIUM
     Indication: Product used for unknown indication
     Dosage: 75 UG
     Route: 065
  16. .DELTA.8-TETRAHYDROCANNABINOL\HERBALS [Concomitant]
     Active Substance: .DELTA.8-TETRAHYDROCANNABINOL\HERBALS
     Indication: Product used for unknown indication
     Dosage: UNK
     Route: 065
  17. SELENASE [Concomitant]
     Indication: Product used for unknown indication
     Dosage: UNK
     Route: 065
  18. DIMETHYL SULFONE [Concomitant]
     Active Substance: DIMETHYL SULFONE
     Indication: Product used for unknown indication
     Dosage: UNK
     Route: 065

REACTIONS (20)
  - Multiple sclerosis relapse [Not Recovered/Not Resolved]
  - Dry skin [Recovered/Resolved]
  - Prurigo [Not Recovered/Not Resolved]
  - B-lymphocyte count increased [Recovered/Resolved]
  - Rhinorrhoea [Recovered/Resolved]
  - Dermatitis allergic [Unknown]
  - Fatigue [Recovered/Resolved]
  - Urinary incontinence [Not Recovered/Not Resolved]
  - Alopecia [Recovered/Resolved]
  - Reaction to excipient [Not Recovered/Not Resolved]
  - Hot flush [Recovered/Resolved]
  - Sciatica [Not Recovered/Not Resolved]
  - Genital tract inflammation [Recovered/Resolved]
  - Skin odour abnormal [Recovered/Resolved]
  - Hypoaesthesia [Not Recovered/Not Resolved]
  - Burning sensation [Not Recovered/Not Resolved]
  - Hypersensitivity [Not Recovered/Not Resolved]
  - Genital herpes [Recovered/Resolved]
  - B-lymphocyte abnormalities [Unknown]
  - Vulvovaginitis [Not Recovered/Not Resolved]

NARRATIVE: CASE EVENT DATE: 20190806
